FAERS Safety Report 8033448-7 (Version None)
Quarter: 2012Q1

REPORT INFORMATION
  Report Type: 
  Country: None (occurrence: None)
  Receive Date: 20120110
  Receipt Date: 20120106
  Transmission Date: 20120608
  Serious: Yes (Other)
  Sender: FDA-Public Use
  Company Number: GB-ROCHE-1011700

PATIENT
  Sex: Female

DRUGS (8)
  1. CHLORAMPHENICOL [Concomitant]
  2. NOVOLOG MIX 70/30 [Concomitant]
  3. SIMVASTATIN [Concomitant]
  4. ASPIRIN [Concomitant]
  5. LUCENTIS [Suspect]
     Indication: AGE-RELATED MACULAR DEGENERATION
     Route: 050
     Dates: start: 20110616
  6. BISOPROLOL FUMARATE [Concomitant]
  7. LISINOPRIL [Concomitant]
  8. ALVERINE [Concomitant]

REACTIONS (5)
  - FALL [None]
  - INFECTION [None]
  - OEDEMA PERIPHERAL [None]
  - FEAR OF FALLING [None]
  - CONJUNCTIVITIS [None]
